FAERS Safety Report 8975229 (Version 1)
Quarter: 2012Q4

REPORT INFORMATION
  Report Type: 
  Country: US (occurrence: US)
  Receive Date: 20121219
  Receipt Date: 20121219
  Transmission Date: 20130627
  Serious: No
  Sender: FDA-Public Use
  Company Number: US-TARO-2012P1057683

PATIENT
  Age: 72 Year
  Sex: Female
  Weight: 69 kg

DRUGS (3)
  1. FLUOROURACIL [Suspect]
     Indication: BASAL CELL CARCINOMA
     Route: 061
     Dates: start: 200801
  2. CALCIUM [Concomitant]
  3. CHOLECALCIFEROL [Concomitant]

REACTIONS (2)
  - Application site irritation [Recovered/Resolved]
  - Bronchitis [Recovered/Resolved]
